FAERS Safety Report 9325521 (Version 1)
Quarter: 2013Q2

REPORT INFORMATION
  Report Type: Spontaneous
  Country: US (occurrence: US)
  Receive Date: 20130604
  Receipt Date: 20130604
  Transmission Date: 20140414
  Serious: No
  Sender: FDA-Public Use
  Company Number: US-009507513-1306USA000357

PATIENT
  Age: 29 Year
  Sex: Male

DRUGS (2)
  1. SAPHRIS [Suspect]
     Indication: BIPOLAR I DISORDER
     Dosage: 10 MG, BID
     Dates: start: 20130430
  2. XANAX [Concomitant]

REACTIONS (3)
  - Oral discomfort [Unknown]
  - Dysgeusia [Unknown]
  - Product taste abnormal [Unknown]
